FAERS Safety Report 5446050-8 (Version None)
Quarter: 2007Q3

REPORT INFORMATION
  Report Type: 
  Country: None (occurrence: None)
  Receive Date: 20070907
  Receipt Date: 20070822
  Transmission Date: 20080115
  Serious: Yes (Hospitalization)
  Sender: FDA-Public Use
  Company Number: DE-BAYER-200051358BVD

PATIENT
  Sex: Female

DRUGS (6)
  1. APROTININ [Suspect]
     Indication: RENAL AND PANCREAS TRANSPLANT
     Route: 042
     Dates: start: 20000622, end: 20000623
  2. VANCOMYCIN [Concomitant]
     Dates: end: 20000623
  3. CEFTRIAXONE [Concomitant]
     Dates: end: 20000623
  4. DOPAMIN [Concomitant]
     Dates: end: 20000623
  5. ALBUMIN (HUMAN) [Concomitant]
     Dates: end: 20000623
  6. RED BLOOD CELLS [Concomitant]
     Dates: end: 20000623

REACTIONS (3)
  - HAEMOLYSIS [None]
  - HYPERSENSITIVITY [None]
  - THROMBOCYTOPENIA [None]
